FAERS Safety Report 14686486 (Version 1)
Quarter: 2018Q1

REPORT INFORMATION
  Report Type: Report from Study
  Country: US (occurrence: US)
  Receive Date: 20180327
  Receipt Date: 20180327
  Transmission Date: 20180509
  Serious: Yes (Other)
  Sender: FDA-Public Use
  Company Number: US-009507513-1708USA005056

PATIENT
  Age: 63 Year
  Sex: Male
  Weight: 52.15 kg

DRUGS (11)
  1. DILAUDID [Suspect]
     Active Substance: HYDROMORPHONE HYDROCHLORIDE
     Dosage: 4 MG, EVERY 4 HOURS
     Dates: start: 201703
  2. ZANTAC [Concomitant]
     Active Substance: RANITIDINE HYDROCHLORIDE
     Dosage: UNK
  3. CARBOPLATIN. [Suspect]
     Active Substance: CARBOPLATIN
     Dosage: 3 WEEKS ON AND ONE WEEK OFF
     Dates: start: 20170613, end: 201709
  4. GABAPENTIN. [Suspect]
     Active Substance: GABAPENTIN
     Dosage: UNK
  5. TUMS [Concomitant]
     Active Substance: CALCIUM CARBONATE
     Dosage: UNK
  6. FENTANYL. [Concomitant]
     Active Substance: FENTANYL
     Dosage: UNK
  7. EMEND [Suspect]
     Active Substance: APREPITANT
     Dosage: UNK
     Dates: start: 20170808
  8. PEMBROLIZUMAB. [Suspect]
     Active Substance: PEMBROLIZUMAB
     Indication: HEAD AND NECK CANCER
     Dosage: UNKNOWN/ EVERY 3 WEEKS, STRENGTH: 100 MG
     Route: 042
     Dates: start: 20170718
  9. TAXOL [Suspect]
     Active Substance: PACLITAXEL
     Dosage: 3 WEEKS ON AND ONE WEEK OFF
     Dates: start: 20170613, end: 201709
  10. NEXIUM I.V. [Concomitant]
     Active Substance: ESOMEPRAZOLE SODIUM
     Dosage: UNK
  11. LYRICA [Suspect]
     Active Substance: PREGABALIN
     Indication: NEURALGIA
     Dosage: UNK
     Dates: start: 2016

REACTIONS (23)
  - Feeling cold [Unknown]
  - Gastrointestinal tube insertion [Unknown]
  - Weight fluctuation [Unknown]
  - Nausea [Unknown]
  - Inappropriate schedule of drug administration [Unknown]
  - Post procedural hypothyroidism [Unknown]
  - Drug dependence [Unknown]
  - Feeling abnormal [Unknown]
  - Gastrointestinal disorder [Recovering/Resolving]
  - Depression [Unknown]
  - Immune system disorder [Unknown]
  - Adverse event [Unknown]
  - Diarrhoea [Recovered/Resolved]
  - Radiation injury [Unknown]
  - Gastroenteritis viral [Not Recovered/Not Resolved]
  - Tracheostomy [Unknown]
  - Rash [Recovering/Resolving]
  - Choking [Unknown]
  - Lethargy [Unknown]
  - Emotional disorder [Unknown]
  - Fatigue [Unknown]
  - Diarrhoea [Unknown]
  - Flushing [Recovering/Resolving]

NARRATIVE: CASE EVENT DATE: 2017
